FAERS Safety Report 6209487-5 (Version None)
Quarter: 2009Q2

REPORT INFORMATION
  Report Type: 
  Country: None (occurrence: None)
  Receive Date: 20090527
  Receipt Date: 20090511
  Transmission Date: 20091009
  Serious: Yes (Disabling)
  Sender: FDA-Public Use
  Company Number: GB-DEXPHARM-20090751

PATIENT
  Age: 63 Year
  Sex: Female

DRUGS (5)
  1. OMEPRAZOLE [Suspect]
     Indication: REFLUX OESOPHAGITIS
     Dosage: DOSE: 20 MG MILLIGRAM(S) SEP. DOSAGES / INTERVAL: 1 IN 1 DAY ORAL
     Route: 048
     Dates: start: 20090421, end: 20090425
  2. LANSOPRAZOLE [Suspect]
     Indication: REFLUX OESOPHAGITIS
     Dosage: DOSE: 30 MG MILLIGRAM(S) SEP. DOSAGES / INTERVAL: 1 IN 1 DAY ORAL
     Route: 048
  3. DOMPERIDONE [Concomitant]
  4. METOCLOPRAMIDE [Concomitant]
  5. MORPHINE SULFATE [Concomitant]

REACTIONS (1)
  - JOINT SWELLING [None]
